FAERS Safety Report 15879013 (Version 3)
Quarter: 2019Q4

REPORT INFORMATION
  Report Type: Spontaneous
  Country: US (occurrence: US)
  Receive Date: 20190128
  Receipt Date: 20191227
  Transmission Date: 20200122
  Serious: Yes (Hospitalization, Other)
  Sender: FDA-Public Use
  Company Number: US-HORIZON-KRY-0042-2019

PATIENT
  Age: 54 Year
  Sex: Male

DRUGS (6)
  1. PRILOSEC [Concomitant]
     Active Substance: OMEPRAZOLE MAGNESIUM
     Dosage: 20MG
  2. PREDNISONE. [Concomitant]
     Active Substance: PREDNISONE
     Dosage: 20MG BID
     Route: 048
  3. IMURAN [Concomitant]
     Active Substance: AZATHIOPRINE
     Dosage: 100MG
     Route: 048
  4. AMLODIPINE [Concomitant]
     Active Substance: AMLODIPINE BESYLATE
     Dosage: 5MG
  5. ELIQUIS [Concomitant]
     Active Substance: APIXABAN
     Dosage: 2.5MG BID
  6. KRYSTEXXA [Suspect]
     Active Substance: PEGLOTICASE
     Indication: GOUT
     Dosage: 8MG IV Q 2 WEEKS
     Dates: start: 20181109, end: 20181214

REACTIONS (5)
  - Infusion related reaction [Unknown]
  - Deep vein thrombosis [Recovered/Resolved]
  - Embolic stroke [Recovered/Resolved]
  - Therapeutic product effect incomplete [Unknown]
  - Carotid artery aneurysm [Recovering/Resolving]

NARRATIVE: CASE EVENT DATE: 20181214
